FAERS Safety Report 11337313 (Version 1)
Quarter: 2015Q3

REPORT INFORMATION
  Report Type: Spontaneous
  Country: US (occurrence: US)
  Receive Date: 20150803
  Receipt Date: 20150803
  Transmission Date: 20151125
  Serious: No
  Sender: FDA-Public Use
  Company Number: US-ELI_LILLY_AND_COMPANY-US200903007256

PATIENT
  Age: 24 Year
  Sex: Female

DRUGS (1)
  1. ZYPREXA [Suspect]
     Active Substance: OLANZAPINE
     Dosage: 20 MG, UNK
     Dates: start: 200812

REACTIONS (3)
  - Restlessness [Unknown]
  - Akathisia [Unknown]
  - Anxiety [Unknown]

NARRATIVE: CASE EVENT DATE: 20090323
